FAERS Safety Report 26112179 (Version 1)
Quarter: 2025Q4

REPORT INFORMATION
  Report Type: Spontaneous
  Country: US (occurrence: None)
  Receive Date: 20251201
  Receipt Date: 20251201
  Transmission Date: 20260117
  Serious: Yes (Life-Threatening)
  Sender: FDA-CTU
  Company Number: None

PATIENT
  Age: 87 Year
  Sex: Female
  Weight: 59.3 kg

DRUGS (1)
  1. LOVENOX [Suspect]
     Active Substance: ENOXAPARIN SODIUM
     Dosage: FREQUENCY : TWICE A DAY;?
     Route: 058
     Dates: start: 20251120, end: 20251125

REACTIONS (4)
  - Lethargy [None]
  - Hypotension [None]
  - Atrial fibrillation [None]
  - Therapy interrupted [None]

NARRATIVE: CASE EVENT DATE: 20251124
